FAERS Safety Report 23903363 (Version 1)
Quarter: 2024Q2

REPORT INFORMATION
  Report Type: Spontaneous
  Country: GB (occurrence: GB)
  Receive Date: 20240527
  Receipt Date: 20240527
  Transmission Date: 20240717
  Serious: Yes (Hospitalization, Other)
  Sender: FDA-Public Use
  Company Number: GB-Zentiva-2024-ZT-009442

PATIENT
  Age: 59 Year
  Sex: Male
  Weight: 93 kg

DRUGS (18)
  1. BISOPROLOL [Suspect]
     Active Substance: BISOPROLOL\BISOPROLOL FUMARATE
     Route: 065
     Dates: start: 20240403, end: 20240403
  2. CODEINE [Concomitant]
     Active Substance: CODEINE
     Dates: start: 20240212
  3. ISOSORBIDE [Concomitant]
     Active Substance: ISOSORBIDE
     Dates: start: 20240403, end: 20240403
  4. HEPARIN [Concomitant]
     Active Substance: HEPARIN SODIUM
     Dates: start: 20240402, end: 20240402
  5. ENOXAPARIN [Concomitant]
     Active Substance: ENOXAPARIN
     Dates: start: 20240403, end: 20240408
  6. ACETAMINOPHEN [Concomitant]
     Active Substance: ACETAMINOPHEN
     Dates: start: 20240402, end: 20240402
  7. ATORVASTATIN [Concomitant]
     Active Substance: ATORVASTATIN
     Dates: start: 20240402
  8. LANSOPRAZOLE [Concomitant]
     Active Substance: LANSOPRAZOLE
     Dates: start: 20240403
  9. MAGNESIUM [Concomitant]
     Active Substance: MAGNESIUM
     Dates: start: 20240402, end: 20240402
  10. LIDOCAINE [Concomitant]
     Active Substance: LIDOCAINE
     Dates: start: 20240402, end: 20240402
  11. FENTANYL [Concomitant]
     Active Substance: FENTANYL\FENTANYL CITRATE
     Dates: start: 20240402, end: 20240402
  12. IBUPROFEN [Concomitant]
     Active Substance: IBUPROFEN
     Dates: end: 20240403
  13. ONDANSETRON [Concomitant]
     Active Substance: ONDANSETRON
     Dates: start: 20240403, end: 20240408
  14. NITROGLYCERIN [Concomitant]
     Active Substance: NITROGLYCERIN
     Dates: start: 20240402
  15. MIDAZOLAM [Concomitant]
     Active Substance: MIDAZOLAM
     Dates: start: 20240402, end: 20240402
  16. ASPIRIN [Concomitant]
     Active Substance: ASPIRIN
     Dates: start: 20240403
  17. RAMIPRIL [Concomitant]
     Active Substance: RAMIPRIL
     Dates: start: 20240402, end: 20240407
  18. TIROFIBAN [Concomitant]
     Active Substance: TIROFIBAN
     Dates: start: 20240402, end: 20240403

REACTIONS (2)
  - Bradycardia [Recovered/Resolved]
  - Angina pectoris [Unknown]

NARRATIVE: CASE EVENT DATE: 20240403
